FAERS Safety Report 8561528-6 (Version None)
Quarter: 2012Q3

REPORT INFORMATION
  Report Type: 
  Country: None (occurrence: None)
  Receive Date: 20120802
  Receipt Date: 20120726
  Transmission Date: 20120928
  Serious: Yes (Other)
  Sender: FDA-Public Use
  Company Number: US-JNJFOC-20120521378

PATIENT
  Sex: Male
  Weight: 90.72 kg

DRUGS (19)
  1. GLYBURIDE [Concomitant]
     Indication: DIABETES MELLITUS
     Route: 048
  2. TOPROL-XL [Concomitant]
     Indication: BLOOD PRESSURE
     Route: 048
  3. COMBIVENT [Concomitant]
     Indication: LUNG DISORDER
     Route: 055
  4. JANUVIA [Concomitant]
     Indication: DIABETES MELLITUS
     Route: 065
  5. AMILORIDE HYDROCHLORIDE [Concomitant]
     Indication: DIURETIC THERAPY
     Route: 065
     Dates: start: 20110101
  6. PREDNISONE [Concomitant]
     Indication: LUNG DISORDER
     Dosage: EVERY OTHER DAY
     Route: 048
  7. THEOPHYLLINE [Concomitant]
     Indication: LUNG DISORDER
     Route: 048
  8. SPIRIVA [Concomitant]
     Indication: LUNG DISORDER
     Route: 055
  9. CEPHALEXIN [Concomitant]
     Route: 065
  10. LEVOFLOXACIN [Suspect]
     Indication: PNEUMONIA
     Dosage: FOR 5 DAYS
     Route: 048
     Dates: start: 20120413, end: 20120418
  11. ASPIRIN [Concomitant]
     Route: 065
  12. ATROVENT [Concomitant]
     Dosage: 0.02% 0.5 MG/2.5 ML
     Route: 065
  13. TOPROL-XL [Concomitant]
     Indication: CARDIAC DISORDER
     Route: 048
  14. MAGNESIUM [Concomitant]
     Route: 065
  15. LEVOFLOXACIN [Suspect]
     Dosage: FOR 5 DAYS
     Route: 048
     Dates: start: 20120413, end: 20120418
  16. ALBUTEROL [Concomitant]
     Dosage: 0.83% 2.5 MG/ 3MI
     Route: 065
  17. DOXYCYCLINE HCL [Concomitant]
     Route: 065
  18. MULTI-VITAMINS [Concomitant]
     Route: 065
  19. ASCORBIC ACID [Concomitant]
     Route: 065

REACTIONS (2)
  - TENDON RUPTURE [None]
  - THROMBOSIS [None]
